FAERS Safety Report 6178473-6 (Version None)
Quarter: 2009Q2

REPORT INFORMATION
  Report Type: 
  Country: None (occurrence: None)
  Receive Date: 20090430
  Receipt Date: 20090416
  Transmission Date: 20091009
  Serious: Yes (Hospitalization, Other)
  Sender: FDA-Public Use
  Company Number: ENTC2007-0271

PATIENT
  Age: 69 Year
  Sex: Male

DRUGS (4)
  1. STALEVO 100 [Suspect]
     Indication: PARKINSON'S DISEASE
     Dosage: ^SEE IMAGE
     Route: 048
  2. DRUG THERAPY NOS [Suspect]
  3. ZOLOFT [Concomitant]
  4. ASPIRIN [Concomitant]

REACTIONS (8)
  - AGGRESSION [None]
  - AORTIC ANEURYSM [None]
  - ERYTHEMA [None]
  - GENERAL PHYSICAL HEALTH DETERIORATION [None]
  - HALLUCINATION [None]
  - HYPERSOMNIA [None]
  - NOSOCOMIAL INFECTION [None]
  - SPEECH DISORDER [None]
